FAERS Safety Report 7290984-9 (Version None)
Quarter: 2011Q1

REPORT INFORMATION
  Report Type: 
  Country: None (occurrence: None)
  Receive Date: 20110214
  Receipt Date: 20110131
  Transmission Date: 20110831
  Serious: Yes (Hospitalization)
  Sender: FDA-Public Use
  Company Number: US-ACTELION-A-NJ2011-44515

PATIENT

DRUGS (5)
  1. TRACLEER [Suspect]
     Indication: PULMONARY ARTERIAL HYPERTENSION
     Dosage: 62.5 MG, UNK
     Route: 048
     Dates: start: 20101223
  2. CALCIUM CHANNEL BLOCKERS [Concomitant]
  3. PRASUGREL [Concomitant]
  4. ASPIRIN [Concomitant]
  5. LEVITRA [Concomitant]

REACTIONS (4)
  - TRANSFUSION [None]
  - PLATELET TRANSFUSION [None]
  - HAEMOGLOBIN DECREASED [None]
  - LOWER GASTROINTESTINAL HAEMORRHAGE [None]
